FAERS Safety Report 5795899-0 (Version None)
Quarter: 2008Q3

REPORT INFORMATION
  Report Type: 
  Country: None (occurrence: None)
  Receive Date: 20080701
  Receipt Date: 20080625
  Transmission Date: 20090109
  Serious: Yes (Other)
  Sender: FDA-Public Use
  Company Number: US-BAYER-200821774NA

PATIENT
  Age: 23 Year
  Sex: Female
  Weight: 81 kg

DRUGS (2)
  1. MIRENA [Suspect]
     Indication: CONTRACEPTION
     Route: 015
     Dates: start: 20071026, end: 20080502
  2. DOXYCYCLINE [Concomitant]
     Dates: start: 20071026, end: 20071030

REACTIONS (5)
  - ABDOMINAL PAIN [None]
  - CROHN'S DISEASE [None]
  - PELVIC INFLAMMATORY DISEASE [None]
  - RECTAL HAEMORRHAGE [None]
  - UTERINE RUPTURE [None]
